FAERS Safety Report 12678336 (Version 1)
Quarter: 2016Q3

REPORT INFORMATION
  Report Type: Report from Study
  Country: US (occurrence: US)
  Receive Date: 20160823
  Receipt Date: 20160823
  Transmission Date: 20161109
  Serious: Yes (Other)
  Sender: FDA-Public Use
  Company Number: US-ACTELION-A-NJ2016-141017

PATIENT
  Age: 72 Year
  Sex: Female

DRUGS (4)
  1. NIFEDIPINE. [Concomitant]
     Active Substance: NIFEDIPINE
  2. TRACLEER [Suspect]
     Active Substance: BOSENTAN
     Indication: PULMONARY ARTERIAL HYPERTENSION
     Dosage: 62.5 MG, UNK
     Route: 048
     Dates: start: 20160111
  3. OXYGEN. [Concomitant]
     Active Substance: OXYGEN
     Dosage: 4 L, UNK
  4. ADCIRCA [Concomitant]
     Active Substance: TADALAFIL

REACTIONS (4)
  - Dyspnoea [Unknown]
  - Cataract operation [Unknown]
  - Coronary artery occlusion [Unknown]
  - Rectal prolapse [Unknown]
